FAERS Safety Report 12376127 (Version 3)
Quarter: 2016Q2

REPORT INFORMATION
  Report Type: Spontaneous
  Country: US (occurrence: US)
  Receive Date: 20160517
  Receipt Date: 20160527
  Transmission Date: 20160815
  Serious: Yes (Other)
  Sender: FDA-Public Use
  Company Number: US-JNJFOC-20160509189

PATIENT
  Age: 29 Year
  Sex: Male

DRUGS (1)
  1. DOXORUBICIN HYDROCHLORIDE. [Suspect]
     Active Substance: DOXORUBICIN HYDROCHLORIDE
     Indication: ALVEOLAR RHABDOMYOSARCOMA
     Dosage: LIFE TIME EXPOSURE
     Route: 065

REACTIONS (5)
  - Hypothyroidism [Recovering/Resolving]
  - Cardiomyopathy [Unknown]
  - Product use issue [Unknown]
  - Off label use [Unknown]
  - Acute left ventricular failure [Recovered/Resolved]

NARRATIVE: CASE EVENT DATE: 20140410
